FAERS Safety Report 8010850-0 (Version None)
Quarter: 2011Q4

REPORT INFORMATION
  Report Type: 
  Country: None (occurrence: None)
  Receive Date: 20111228
  Receipt Date: 20111220
  Transmission Date: 20120403
  Serious: Yes (Hospitalization)
  Sender: FDA-Public Use
  Company Number: PHHY2011GB110792

PATIENT
  Age: 82 Year
  Sex: Female
  Weight: 54.9 kg

DRUGS (8)
  1. COSOPT [Concomitant]
     Indication: GLAUCOMA
     Dosage: 1 DF, QD
  2. LATANOPROST [Concomitant]
     Dosage: 1 DF, QD
  3. SIMVASTATIN [Concomitant]
     Dosage: 40 MG, QD
     Route: 048
  4. ADCAL-D3 [Concomitant]
     Dosage: 1 DF, BID
     Route: 048
  5. OMEPRAZOLE [Concomitant]
     Dosage: 20 MG, QD
     Route: 048
  6. CITALOPRAM HYDROBROMIDE [Suspect]
     Indication: DEPRESSION
     Dosage: 10 MG, UNK
     Route: 048
     Dates: end: 20111101
  7. ALENDRONATE SODIUM [Concomitant]
     Dosage: 70 MG, QW
     Route: 048
  8. ASPIRIN [Concomitant]
     Dosage: 75 MG, QD
     Route: 048

REACTIONS (3)
  - CONFUSIONAL STATE [None]
  - HYPONATRAEMIA [None]
  - HYPOPHAGIA [None]
